FAERS Safety Report 4827915-4 (Version None)
Quarter: 2005Q4

REPORT INFORMATION
  Report Type: 
  Country: None (occurrence: None)
  Receive Date: 20051110
  Receipt Date: 20051104
  Transmission Date: 20060501
  Serious: Yes (Other)
  Sender: FDA-Public Use
  Company Number: 200514435BCC

PATIENT

DRUGS (1)
  1. ALEVE [Suspect]
     Dosage: ORAL
     Route: 048

REACTIONS (1)
  - LOSS OF CONSCIOUSNESS [None]
